FAERS Safety Report 22274463 (Version 1)
Quarter: 2023Q2

REPORT INFORMATION
  Report Type: Spontaneous
  Country: US (occurrence: None)
  Receive Date: 20230501
  Receipt Date: 20230501
  Transmission Date: 20230721
  Serious: Yes (Hospitalization)
  Sender: FDA-Public Use
  Company Number: None

PATIENT
  Age: 72 Year
  Sex: Female
  Weight: 43.0 kg

DRUGS (12)
  1. LENALIDOMIDE [Suspect]
     Active Substance: LENALIDOMIDE
     Indication: Plasma cell myeloma
     Dosage: OTHER FREQUENCY : 2W,1WOFF;?
     Route: 048
  2. ATORVASTATIN [Concomitant]
  3. CARBIDOPA-LEVODOPA-ENTACAPONE [Concomitant]
  4. DEXAMETHASONE [Concomitant]
  5. ENTACAPONE [Concomitant]
     Active Substance: ENTACAPONE
  6. MELOXICAM [Concomitant]
     Active Substance: MELOXICAM
  7. METOPROLOL TARTRATE [Concomitant]
  8. ONDANSETRON [Concomitant]
  9. POTASSIUM CHLORIDE ER [Concomitant]
  10. RALOXIFENE [Concomitant]
  11. TAMOXIFEN CITRATE [Concomitant]
  12. ASPIRIN [Concomitant]

REACTIONS (3)
  - Fall [None]
  - Fracture [None]
  - Therapy interrupted [None]
